FAERS Safety Report 20310182 (Version 6)
Quarter: 2024Q1

REPORT INFORMATION
  Report Type: Report from Study
  Country: IN (occurrence: IN)
  Receive Date: 20220107
  Receipt Date: 20240209
  Transmission Date: 20240410
  Serious: Yes (Other)
  Sender: FDA-Public Use
  Company Number: IN-002147023-NVSC2020IN142644

PATIENT

DRUGS (10)
  1. RUXOLITINIB [Suspect]
     Active Substance: RUXOLITINIB
     Indication: Primary myelofibrosis
     Dosage: 15 MG, BID
     Route: 048
     Dates: start: 20200219, end: 20210417
  2. RUXOLITINIB [Suspect]
     Active Substance: RUXOLITINIB
     Dosage: 15 MG, QOD (ALTERNATIVE DAYS)
     Route: 048
  3. RUXOLITINIB [Suspect]
     Active Substance: RUXOLITINIB
     Dosage: 15 MG, BID (ON ALTERNATE DAYS)
     Route: 065
     Dates: start: 20210418
  4. RUXOLITINIB [Suspect]
     Active Substance: RUXOLITINIB
     Dosage: 15 MG, QD
     Route: 065
     Dates: start: 20210418, end: 20210909
  5. RUXOLITINIB [Suspect]
     Active Substance: RUXOLITINIB
     Dosage: 20 MG, BID
     Route: 065
     Dates: start: 20210910, end: 20211024
  6. RUXOLITINIB [Suspect]
     Active Substance: RUXOLITINIB
     Dosage: 20 MG, BID (ON ALTERNATE DAYS)
     Route: 065
     Dates: start: 20220119
  7. RUXOLITINIB [Suspect]
     Active Substance: RUXOLITINIB
     Dosage: 5 MG, BID (ON ALTERNATE DAYS)
     Route: 065
     Dates: start: 20230105
  8. RUXOLITINIB [Suspect]
     Active Substance: RUXOLITINIB
     Dosage: 5 MG, QD (ON ALTERNATE DAYS)
     Route: 065
     Dates: start: 20230420
  9. RUXOLITINIB [Suspect]
     Active Substance: RUXOLITINIB
     Dosage: UNK, (10 MG IN THE MORNING AND 5 MG IN THE EVENING)
     Route: 048
     Dates: start: 20230822
  10. RUXOLITINIB [Suspect]
     Active Substance: RUXOLITINIB
     Dosage: 5 MG, BID (ON ALTERNATE DAYS)
     Route: 048

REACTIONS (6)
  - Bone pain [Not Recovered/Not Resolved]
  - Cytopenia [Unknown]
  - Haemoglobin decreased [Unknown]
  - Hyperglycaemia [Unknown]
  - Incorrect dose administered [Unknown]
  - Inappropriate schedule of product administration [Unknown]

NARRATIVE: CASE EVENT DATE: 20211024
